FAERS Safety Report 16468293 (Version 1)
Quarter: 2019Q3

REPORT INFORMATION
  Report Type: Spontaneous
  Country: US (occurrence: US)
  Receive Date: 20190621
  Receipt Date: 20190621
  Transmission Date: 20191004
  Serious: Yes (Death)
  Sender: FDA-Public Use
  Company Number: None

PATIENT
  Age: 60 Year
  Sex: Male
  Weight: 113 kg

DRUGS (4)
  1. ESMOLOL [Suspect]
     Active Substance: ESMOLOL HYDROCHLORIDE
     Dates: start: 20190614, end: 20190614
  2. VANCOMYCIN [Suspect]
     Active Substance: VANCOMYCIN
     Dates: start: 20190614, end: 20190614
  3. EPINEPHRINE. [Suspect]
     Active Substance: EPINEPHRINE
  4. EPINEPHRINE. [Suspect]
     Active Substance: EPINEPHRINE
     Dates: start: 20190614, end: 20190614

REACTIONS (3)
  - Wrong product administered [None]
  - Blood pressure increased [None]
  - Heart rate increased [None]
